FAERS Safety Report 16347283 (Version 1)
Quarter: 2019Q2

REPORT INFORMATION
  Report Type: Spontaneous
  Country: US (occurrence: US)
  Receive Date: 20190417
  Receipt Date: 20190417
  Transmission Date: 20190711
  Serious: No
  Sender: FDA-Public Use
  Company Number: None

PATIENT
  Age: 67 Year
  Sex: Female

DRUGS (2)
  1. REPATHA [Suspect]
     Active Substance: EVOLOCUMAB
     Indication: VERTEBRAL ARTERY STENOSIS
     Dosage: ?          OTHER FREQUENCY:EVERY 2 WKS AS DIR;?
     Route: 058
     Dates: start: 201711
  2. REPATHA [Suspect]
     Active Substance: EVOLOCUMAB
     Indication: TYPE V HYPERLIPIDAEMIA
     Dosage: ?          OTHER FREQUENCY:EVERY 2 WKS AS DIR;?
     Route: 058
     Dates: start: 201711

REACTIONS (1)
  - Foot operation [None]
